FAERS Safety Report 9404645 (Version 2)
Quarter: 2013Q3

REPORT INFORMATION
  Report Type: Spontaneous
  Country: RU (occurrence: RU)
  Receive Date: 20130717
  Receipt Date: 20130819
  Transmission Date: 20140515
  Serious: Yes (Other)
  Sender: FDA-Public Use
  Company Number: PHHY2013RU075217

PATIENT
  Age: 80 Year
  Sex: Male

DRUGS (5)
  1. ONBREZ [Suspect]
     Indication: CHRONIC OBSTRUCTIVE PULMONARY DISEASE
     Dosage: 150 UG, QD
     Dates: start: 20130707, end: 20130711
  2. SPIRIVA [Concomitant]
     Indication: CHRONIC OBSTRUCTIVE PULMONARY DISEASE
     Dosage: UNK UKN, UNK
  3. OMNIC [Concomitant]
     Indication: PROSTATIC ADENOMA
     Dosage: UNK UKN, UNK
     Route: 048
  4. ASPIRINE [Concomitant]
     Indication: MYOCARDIAL ISCHAEMIA
     Dosage: UNK UKN, UNK
     Route: 048
  5. CRESTOR [Concomitant]
     Indication: HYPERLIPIDAEMIA
     Dosage: UNK UKN, UNK
     Route: 048

REACTIONS (5)
  - Presyncope [Recovered/Resolved]
  - Chest discomfort [Recovered/Resolved]
  - Dyspnoea [Recovered/Resolved]
  - Exercise tolerance decreased [Recovered/Resolved]
  - Drug ineffective [Not Recovered/Not Resolved]
